FAERS Safety Report 9523944 (Version 1)
Quarter: 2013Q3

REPORT INFORMATION
  Report Type: Spontaneous
  Country: US (occurrence: None)
  Receive Date: 20130912
  Receipt Date: 20130912
  Transmission Date: 20140515
  Serious: No
  Sender: FDA-Public Use
  Company Number: NXG-13-007

PATIENT
  Sex: Female

DRUGS (2)
  1. FIORICET [Suspect]
     Indication: PAIN
  2. FIORICET [Suspect]
     Indication: HEADACHE

REACTIONS (1)
  - Diarrhoea [None]
